FAERS Safety Report 12173110 (Version 3)
Quarter: 2016Q2

REPORT INFORMATION
  Report Type: Report from Study
  Country: US (occurrence: US)
  Receive Date: 20160311
  Receipt Date: 20160404
  Transmission Date: 20160815
  Serious: Yes (Hospitalization, Other)
  Sender: FDA-Public Use
  Company Number: US-ASTRAZENECA-2016SE20913

PATIENT
  Age: 53 Year
  Sex: Female
  Weight: 65.3 kg

DRUGS (8)
  1. SPIRIVA [Concomitant]
     Active Substance: TIOTROPIUM BROMIDE MONOHYDRATE
  2. WELLBUTRIN [Concomitant]
     Active Substance: BUPROPION HYDROCHLORIDE
     Indication: DEPRESSION
  3. ALBUTEROL. [Concomitant]
     Active Substance: ALBUTEROL
     Dosage: THREE TIMES A DAY
  4. ADVAIR HFA [Concomitant]
     Active Substance: FLUTICASONE PROPIONATE\SALMETEROL XINAFOATE
     Dosage: 250 TWICE DAILY
  5. PROAIR HFA [Concomitant]
     Active Substance: ALBUTEROL SULFATE
  6. DALIRESP [Suspect]
     Active Substance: ROFLUMILAST
     Indication: ALPHA-1 ANTI-TRYPSIN DEFICIENCY
     Route: 048
     Dates: start: 2013
  7. IPRATROPIUM BROMIDE. [Concomitant]
     Active Substance: IPRATROPIUM BROMIDE
     Dosage: THREE TIMES A DAY
  8. LIPITOR [Concomitant]
     Active Substance: ATORVASTATIN CALCIUM
     Indication: MYOCARDIAL INFARCTION

REACTIONS (9)
  - Dyspnoea [Unknown]
  - Condition aggravated [Unknown]
  - Stress [Unknown]
  - Nasopharyngitis [Unknown]
  - Memory impairment [Unknown]
  - Total lung capacity decreased [Unknown]
  - Myocardial infarction [Unknown]
  - Pneumonia [Unknown]
  - Intentional product misuse [Unknown]

NARRATIVE: CASE EVENT DATE: 2015
